FAERS Safety Report 15468826 (Version 1)
Quarter: 2018Q4

REPORT INFORMATION
  Report Type: Spontaneous
  Country: US (occurrence: US)
  Receive Date: 20181005
  Receipt Date: 20181005
  Transmission Date: 20190204
  Serious: No
  Sender: FDA-Public Use
  Company Number: US-GLAXOSMITHKLINE-US2018175927

PATIENT
  Age: 84 Year
  Sex: Female

DRUGS (1)
  1. ALLI [Suspect]
     Active Substance: ORLISTAT
     Indication: WEIGHT CONTROL
     Dosage: UNK
     Dates: start: 20180901, end: 20180904

REACTIONS (2)
  - Abdominal pain upper [Recovering/Resolving]
  - Adverse event [Recovered/Resolved]

NARRATIVE: CASE EVENT DATE: 20180901
